FAERS Safety Report 12380893 (Version 1)
Quarter: 2016Q2

REPORT INFORMATION
  Report Type: Report from Study
  Country: PA (occurrence: PA)
  Receive Date: 20160518
  Receipt Date: 20160518
  Transmission Date: 20160815
  Serious: Yes (Other)
  Sender: FDA-Public Use
  Company Number: PHHY2015PA097439

PATIENT
  Age: 71 Year
  Sex: Male

DRUGS (1)
  1. SANDOSTATIN LAR DEPOT [Suspect]
     Active Substance: OCTREOTIDE ACETATE
     Indication: CARCINOID TUMOUR
     Dosage: 40 MG, QMO
     Route: 030

REACTIONS (12)
  - Dyspnoea [Recovered/Resolved]
  - Abasia [Recovered/Resolved]
  - Injection site pain [Unknown]
  - Peripheral swelling [Unknown]
  - Ascites [Unknown]
  - Generalised oedema [Unknown]
  - Oliguria [Unknown]
  - Asthenia [Unknown]
  - Limb discomfort [Unknown]
  - Chills [Recovered/Resolved]
  - Fatigue [Unknown]
  - Fall [Unknown]

NARRATIVE: CASE EVENT DATE: 201504
